FAERS Safety Report 19247345 (Version 1)
Quarter: 2021Q2

REPORT INFORMATION
  Report Type: Spontaneous
  Country: US (occurrence: US)
  Receive Date: 20210512
  Receipt Date: 20210512
  Transmission Date: 20210717
  Serious: No
  Sender: FDA-Public Use
  Company Number: None

PATIENT
  Age: 73 Year
  Sex: Male
  Weight: 97.07 kg

DRUGS (2)
  1. LOSARTAN (LOSARTAN POTASSIUM 100MG TAB) [Suspect]
     Active Substance: LOSARTAN POTASSIUM
     Indication: HYPERTENSION
     Dates: start: 20201228, end: 20210318
  2. SULFAMETHOXAZOLE/TRIMETHOPRIM (SULFAMETHOXAZOLE 800MG/TRIMETHOPRIM 160 [Suspect]
     Active Substance: SULFAMETHOXAZOLE\TRIMETHOPRIM
     Indication: URINARY TRACT INFECTION
     Dosage: ?          OTHER DOSE:800/160 MG;?
     Route: 048
     Dates: start: 20210309, end: 20210315

REACTIONS (4)
  - Blood creatine increased [None]
  - Blood pressure increased [None]
  - Blood urea increased [None]
  - Hyperkalaemia [None]

NARRATIVE: CASE EVENT DATE: 20210318
